FAERS Safety Report 6349565-3 (Version None)
Quarter: 2009Q3

REPORT INFORMATION
  Report Type: 
  Country: None (occurrence: None)
  Receive Date: 20090911
  Receipt Date: 20090831
  Transmission Date: 20100115
  Serious: Yes (Other)
  Sender: FDA-Public Use
  Company Number: AU-PFIZER INC-2009263055

PATIENT
  Age: 69 Year

DRUGS (3)
  1. HEPARIN SODIUM [Suspect]
     Dosage: 1 MG/KG, SINGLE
  2. HEPARIN SODIUM [Suspect]
     Dosage: 300 IU/KG, UNK
  3. ENOXAPARIN [Suspect]
     Indication: THROMBOSIS PROPHYLAXIS
     Dosage: 1 MG/KG, UNK
     Route: 058

REACTIONS (3)
  - HEPARIN-INDUCED THROMBOCYTOPENIA [None]
  - PYODERMA GANGRENOSUM [None]
  - THROMBOTIC MICROANGIOPATHY [None]
